FAERS Safety Report 21920110 (Version 4)
Quarter: 2024Q1

REPORT INFORMATION
  Report Type: Spontaneous
  Country: US (occurrence: US)
  Receive Date: 20230127
  Receipt Date: 20240215
  Transmission Date: 20240410
  Serious: Yes (Hospitalization, Other)
  Sender: FDA-Public Use
  Company Number: US-PFIZER INC-202101597826

PATIENT
  Age: 84 Year
  Sex: Male
  Weight: 62.14 kg

DRUGS (4)
  1. VYNDAMAX [Suspect]
     Active Substance: TAFAMIDIS
     Indication: Amyloidosis
     Dosage: 61 MG, 1X/DAY
     Route: 048
  2. VYNDAMAX [Suspect]
     Active Substance: TAFAMIDIS
     Indication: Amyloidosis
     Dosage: 61 MG, 1X/DAY
     Route: 048
  3. ELIQUIS [Concomitant]
     Active Substance: APIXABAN
     Dosage: UNK
  4. AMIODARONE [Concomitant]
     Active Substance: AMIODARONE
     Dosage: UNK

REACTIONS (3)
  - Transcatheter aortic valve implantation [Recovered/Resolved]
  - Cerebrovascular accident [Unknown]
  - Cardioversion [Unknown]

NARRATIVE: CASE EVENT DATE: 20220808
